FAERS Safety Report 12840981 (Version 1)
Quarter: 2016Q4

REPORT INFORMATION
  Report Type: Report from Study
  Country: AU (occurrence: AU)
  Receive Date: 20161012
  Receipt Date: 20161012
  Transmission Date: 20170207
  Serious: Yes (Death)
  Sender: FDA-Public Use
  Company Number: AU-ASTRAZENECA-2016SF05525

PATIENT
  Sex: Male

DRUGS (2)
  1. COSUDEX [Suspect]
     Active Substance: BICALUTAMIDE
     Dosage: 50.0MG UNKNOWN
     Route: 065
     Dates: start: 20140406
  2. ZOLADEX [Suspect]
     Active Substance: GOSERELIN ACETATE
     Dosage: 10.8MG UNKNOWN
     Route: 058
     Dates: start: 20140606

REACTIONS (1)
  - Death [Fatal]
